FAERS Safety Report 6603304-7 (Version None)
Quarter: 2010Q1

REPORT INFORMATION
  Report Type: 
  Country: None (occurrence: None)
  Receive Date: 20100226
  Receipt Date: 20091202
  Transmission Date: 20100710
  Serious: No
  Sender: FDA-Public Use
  Company Number: A0624644A

PATIENT
  Sex: Male

DRUGS (1)
  1. VALTREX [Suspect]
     Dosage: 500MG PER DAY
     Route: 048

REACTIONS (4)
  - DRUG INEFFECTIVE [None]
  - DRUG RESISTANCE [None]
  - ORAL HERPES [None]
  - PRODUCT QUALITY ISSUE [None]
